FAERS Safety Report 7528865-5 (Version None)
Quarter: 2011Q2

REPORT INFORMATION
  Report Type: 
  Country: None (occurrence: None)
  Receive Date: 20110607
  Receipt Date: 20101202
  Transmission Date: 20111010
  Serious: No
  Sender: FDA-Public Use
  Company Number: US-ASTRAZENECA-2010SE58592

PATIENT
  Age: 78 Year
  Sex: Male

DRUGS (5)
  1. THYROID THERAPY [Concomitant]
     Dosage: UNKNOWN
  2. PRILOSEC OTC [Suspect]
     Route: 048
     Dates: start: 20101101
  3. VITAMINS [Concomitant]
     Dosage: UNKNOWN
  4. NAPROXEN (ALEVE) [Concomitant]
     Dosage: UNKNOWN
  5. ASPIRIN [Concomitant]
     Dosage: UNKNOWN

REACTIONS (3)
  - DYSPNOEA [None]
  - CARDIAC DISORDER [None]
  - INCORRECT DRUG ADMINISTRATION DURATION [None]
